FAERS Safety Report 9319404 (Version 1)
Quarter: 2013Q2

REPORT INFORMATION
  Report Type: Spontaneous
  Country: US (occurrence: None)
  Receive Date: 20130529
  Receipt Date: 20130529
  Transmission Date: 20140414
  Serious: Yes (Other)
  Sender: FDA-Public Use
  Company Number: None

PATIENT
  Sex: Male
  Weight: 72.12 kg

DRUGS (2)
  1. TRAZODONE [Suspect]
     Indication: PAIN
     Dates: start: 2012, end: 2013
  2. TRAZODONE [Suspect]
     Dates: start: 2012, end: 2013

REACTIONS (2)
  - Sinus disorder [None]
  - Nasal congestion [None]
